FAERS Safety Report 5018039-4 (Version None)
Quarter: 2006Q2

REPORT INFORMATION
  Report Type: 
  Country: None (occurrence: None)
  Receive Date: 20060530
  Receipt Date: 20050309
  Transmission Date: 20061013
  Serious: Yes (Life-Threatening)
  Sender: FDA-Public Use
  Company Number: 2005043350

PATIENT
  Age: 44 Year
  Sex: Female
  Weight: 55 kg

DRUGS (6)
  1. LYRICA [Suspect]
     Indication: NEURALGIA
     Dosage: 150 MG, ORAL
     Route: 048
     Dates: start: 20050220
  2. DURAGESIC-100 [Suspect]
     Indication: NEURALGIA
     Dosage: 200 MCG, TRANSDERMAL
     Route: 062
  3. NOVALGIN (METAMIZOLE SODIUM) [Concomitant]
  4. ATOSIL (ISOPROMETHAZINE HYDROCHLORIDE) [Concomitant]
  5. DEXAMETHASONE [Concomitant]
  6. AMITRIPTYLINE HCL [Concomitant]

REACTIONS (2)
  - COMA [None]
  - RESPIRATORY DEPRESSION [None]
